FAERS Safety Report 8041584-4 (Version None)
Quarter: 2012Q1

REPORT INFORMATION
  Report Type: 
  Country: None (occurrence: None)
  Receive Date: 20120112
  Receipt Date: 20120104
  Transmission Date: 20120608
  Serious: Yes (Other)
  Sender: FDA-Public Use
  Company Number: BR-PFIZER INC-2012007344

PATIENT
  Age: 42 Year
  Sex: Male
  Weight: 97 kg

DRUGS (6)
  1. MOTILIUM-M [Concomitant]
     Indication: OESOPHAGITIS
  2. MOTILIUM-M [Concomitant]
     Indication: GASTROOESOPHAGEAL REFLUX DISEASE
  3. PANTOPRAZOLE [Suspect]
     Indication: HIATUS HERNIA
     Dosage: 40 MG, 1X/DAY
     Route: 048
     Dates: start: 20111001, end: 20111001
  4. PANTOPRAZOLE [Suspect]
     Indication: OESOPHAGITIS
  5. PANTOPRAZOLE [Suspect]
     Indication: GASTROOESOPHAGEAL REFLUX DISEASE
  6. MOTILIUM-M [Concomitant]
     Indication: HIATUS HERNIA
     Dosage: 1 DOSAGE FORMS
     Route: 048
     Dates: start: 20001001

REACTIONS (3)
  - PYREXIA [None]
  - ANAL HAEMORRHAGE [None]
  - CONSTIPATION [None]
